FAERS Safety Report 5210638-X (Version None)
Quarter: 2006Q4

REPORT INFORMATION
  Report Type: 
  Country: None (occurrence: None)
  Receive Date: 20061106
  Receipt Date: 20060821
  Transmission Date: 20070319
  Serious: No
  Sender: FDA-Public Use
  Company Number: VNL_0187_2006

PATIENT
  Age: 68 Year
  Sex: Male
  Weight: 72.5755 kg

DRUGS (10)
  1. APOKYN [Suspect]
     Indication: MUSCLE RIGIDITY
     Dosage: 0.4 ML ONCE SC
     Route: 058
     Dates: start: 20060731
  2. APOKYN [Suspect]
     Indication: PARKINSON'S DISEASE
     Dosage: 0.4 ML ONCE SC
     Route: 058
     Dates: start: 20060731
  3. APOKYN [Suspect]
     Indication: MUSCLE RIGIDITY
     Dosage: 0.2 ML QDAY SC
     Route: 058
     Dates: start: 20060701, end: 20060731
  4. APOKYN [Suspect]
     Indication: PARKINSON'S DISEASE
     Dosage: 0.2 ML QDAY SC
     Route: 058
     Dates: start: 20060701, end: 20060731
  5. SINEMET [Concomitant]
  6. COMTAN [Concomitant]
  7. REMERON [Concomitant]
  8. SEROQUEL [Concomitant]
  9. ZANAFLEX [Concomitant]
  10. TOPAMAX [Concomitant]

REACTIONS (1)
  - RASH MACULO-PAPULAR [None]
